FAERS Safety Report 25040274 (Version 1)
Quarter: 2025Q1

REPORT INFORMATION
  Report Type: Spontaneous
  Country: US (occurrence: US)
  Receive Date: 20250305
  Receipt Date: 20250305
  Transmission Date: 20250408
  Serious: No
  Sender: AJANTA PHARMA USA INC
  Company Number: US-AJANTA-2025AJA00022

PATIENT
  Age: 77 Year
  Weight: 134 kg

DRUGS (2)
  1. CHOLESTYRAMINE [Suspect]
     Active Substance: CHOLESTYRAMINE
     Indication: Diarrhoea
     Route: 048
     Dates: start: 202501, end: 2025
  2. CHOLESTYRAMINE [Suspect]
     Active Substance: CHOLESTYRAMINE
     Route: 048
     Dates: start: 202502

REACTIONS (5)
  - Product taste abnormal [Unknown]
  - Product odour abnormal [Recovered/Resolved]
  - Product use in unapproved indication [Unknown]
  - Product quality issue [Unknown]
  - Product packaging difficult to open [Unknown]

NARRATIVE: CASE EVENT DATE: 20250101
